FAERS Safety Report 4536711-7 (Version None)
Quarter: 2004Q4

REPORT INFORMATION
  Report Type: 
  Country: None (occurrence: None)
  Receive Date: 20041220
  Receipt Date: 20041203
  Transmission Date: 20050328
  Serious: Yes (Hospitalization)
  Sender: FDA-Public Use
  Company Number: 2004BI000976

PATIENT
  Age: 57 Year
  Sex: Male
  Weight: 95.2554 kg

DRUGS (8)
  1. AVONEX [Suspect]
     Indication: MULTIPLE SCLEROSIS
     Dosage: 30 UG; QW; IM
     Route: 030
     Dates: start: 19960901, end: 20040101
  2. AVONEX [Suspect]
     Indication: MULTIPLE SCLEROSIS
     Dosage: 30 UG; QW; IM
     Route: 030
     Dates: start: 20040101
  3. ISOPTIN [Concomitant]
  4. CARDURA [Concomitant]
  5. CATAPRES-TTS-1 [Concomitant]
  6. INDERAL [Concomitant]
  7. MICARDIS [Concomitant]
  8. PRAVACHOL [Concomitant]

REACTIONS (14)
  - ANGER [None]
  - ANOREXIA [None]
  - BACK INJURY [None]
  - DEPRESSION [None]
  - DIARRHOEA [None]
  - FALL [None]
  - FOOT FRACTURE [None]
  - HYPOAESTHESIA [None]
  - INFLUENZA LIKE ILLNESS [None]
  - INTERVERTEBRAL DISC PROTRUSION [None]
  - LIMB INJURY [None]
  - PAIN IN EXTREMITY [None]
  - VOMITING [None]
  - WEIGHT DECREASED [None]
